FAERS Safety Report 9805980 (Version 1)
Quarter: 2014Q1

REPORT INFORMATION
  Report Type: Spontaneous
  Country: GB (occurrence: None)
  Receive Date: 20140107
  Receipt Date: 20140107
  Transmission Date: 20141002
  Serious: Yes (Other)
  Sender: FDA-Public Use
  Company Number: AUR-APL-2014-00035

PATIENT
  Sex: Male
  Weight: 10.6 kg

DRUGS (4)
  1. AMOXICILLIN (AMOXICILLIN) [Suspect]
     Indication: OTITIS MEDIA
     Dates: start: 20131217
  2. CHLORAMPHENICOL (CHLORAMPHENICOL) [Concomitant]
  3. CHLORPHENAMINE (CHLORPHENAMNIE) [Concomitant]
  4. IBUPROFEN (IBUPROFEN) [Concomitant]

REACTIONS (2)
  - Drug eruption [None]
  - Urticaria [None]
